FAERS Safety Report 21879848 (Version 1)
Quarter: 2023Q1

REPORT INFORMATION
  Report Type: Spontaneous
  Country: US (occurrence: None)
  Receive Date: 20230117
  Receipt Date: 20230117
  Transmission Date: 20230418
  Serious: No
  Sender: FDA-Public Use
  Company Number: None

PATIENT
  Age: 67 Year
  Sex: Male
  Weight: 76.5 kg

DRUGS (7)
  1. TAMSULOSIN HYDROCHLORIDE [Suspect]
     Active Substance: TAMSULOSIN HYDROCHLORIDE
     Indication: Benign prostatic hyperplasia
     Dosage: OTHER QUANTITY : 1 CAPSULE(S);?FREQUENCY : DAILY;?
     Route: 048
     Dates: start: 20230114, end: 20230115
  2. LEVOTHYROXINE [Concomitant]
     Active Substance: LEVOTHYROXINE
  3. VITAMIN D [Concomitant]
     Active Substance: VITAMIN D NOS
  4. Monoloren [Concomitant]
  5. PSYLLIUM HUSK [Concomitant]
     Active Substance: PSYLLIUM HUSK
  6. PHILLIPS ORIGINAL MILK OF MAGNESIA [Concomitant]
     Active Substance: MAGNESIUM HYDROXIDE
  7. FLONASE [Concomitant]
     Active Substance: FLUTICASONE PROPIONATE

REACTIONS (10)
  - Hypersensitivity [None]
  - Palpitations [None]
  - Sensation of foreign body [None]
  - Cough [None]
  - Insomnia [None]
  - Fatigue [None]
  - Hyperventilation [None]
  - Sinus congestion [None]
  - Swelling [None]
  - Upper-airway cough syndrome [None]

NARRATIVE: CASE EVENT DATE: 20230114
